FAERS Safety Report 6039196-7 (Version None)
Quarter: 2009Q1

REPORT INFORMATION
  Report Type: 
  Country: None (occurrence: None)
  Receive Date: 20090115
  Receipt Date: 20081201
  Transmission Date: 20090719
  Serious: Yes (Other)
  Sender: FDA-Public Use
  Company Number: US-PFIZER INC-2008087232

PATIENT
  Sex: Male
  Weight: 80.909 kg

DRUGS (4)
  1. LIPITOR [Suspect]
     Indication: CARDIAC FAILURE
     Dosage: 40MG
     Route: 048
     Dates: start: 20000101, end: 20080901
  2. LIPITOR [Suspect]
     Indication: VASCULAR GRAFT
  3. ASPIRIN [Concomitant]
  4. COZAAR [Concomitant]

REACTIONS (12)
  - ARTHRALGIA [None]
  - ARTHRITIS [None]
  - ARTHROPOD BITE [None]
  - BACK PAIN [None]
  - BLOOD CHOLESTEROL INCREASED [None]
  - DRUG TOXICITY [None]
  - MUSCLE ATROPHY [None]
  - PAIN [None]
  - PAIN IN EXTREMITY [None]
  - UNEVALUABLE EVENT [None]
  - VIRAL INFECTION [None]
  - WEIGHT DECREASED [None]
